FAERS Safety Report 6061428-X (Version None)
Quarter: 2009Q1

REPORT INFORMATION
  Report Type: 
  Country: None (occurrence: None)
  Receive Date: 20090129
  Receipt Date: 20090129
  Transmission Date: 20090719
  Serious: Yes (Disabling)
  Sender: FDA-Public Use
  Company Number: None

PATIENT
  Age: 75 Year
  Sex: Female
  Weight: 72.5755 kg

DRUGS (1)
  1. LISINOPRIL [Suspect]
     Indication: BLOOD PRESSURE INCREASED
     Dosage: 7.50 MG ONCE A DAY
     Dates: start: 20060801, end: 20090106

REACTIONS (7)
  - ADVERSE DRUG REACTION [None]
  - ANOREXIA [None]
  - DERMATITIS [None]
  - ERYTHEMA [None]
  - MALAISE [None]
  - RASH PRURITIC [None]
  - WEIGHT DECREASED [None]
